FAERS Safety Report 9613351 (Version 1)
Quarter: 2013Q4

REPORT INFORMATION
  Report Type: Spontaneous
  Country: JP (occurrence: JP)
  Receive Date: 20131010
  Receipt Date: 20131010
  Transmission Date: 20140711
  Serious: Yes (Other)
  Sender: FDA-Public Use
  Company Number: JP-JNJFOC-20131003111

PATIENT
  Age: 52 Year
  Sex: Female

DRUGS (4)
  1. DUROTEP MT [Suspect]
     Indication: CANCER PAIN
     Route: 062
  2. DUROTEP MT [Suspect]
     Indication: CANCER PAIN
     Route: 062
  3. OXYCODONE HYDROCHLORIDE [Concomitant]
     Indication: CANCER PAIN
     Route: 065
  4. ACETAMINOPHEN [Concomitant]
     Indication: CANCER PAIN
     Route: 065

REACTIONS (3)
  - Delirium [Recovering/Resolving]
  - Overdose [Unknown]
  - Somnolence [Recovering/Resolving]
